FAERS Safety Report 7523072-4 (Version None)
Quarter: 2011Q2

REPORT INFORMATION
  Report Type: 
  Country: None (occurrence: None)
  Receive Date: 20110601
  Receipt Date: 20110601
  Transmission Date: 20111010
  Serious: Yes (Hospitalization)
  Sender: FDA-Public Use
  Company Number: None

PATIENT

DRUGS (1)
  1. WARFARIN SODIUM [Suspect]

REACTIONS (4)
  - HAEMOGLOBIN DECREASED [None]
  - OESOPHAGITIS [None]
  - GASTROINTESTINAL MOTILITY DISORDER [None]
  - GASTRIC HAEMORRHAGE [None]
